FAERS Safety Report 21557060 (Version 2)
Quarter: 2022Q4

REPORT INFORMATION
  Report Type: Spontaneous
  Country: CA (occurrence: CA)
  Receive Date: 20221104
  Receipt Date: 20221213
  Transmission Date: 20230112
  Serious: Yes (Other)
  Sender: FDA-Public Use
  Company Number: CA-ANIPHARMA-2022-CA-002200

PATIENT
  Age: 83 Year
  Sex: Male

DRUGS (3)
  1. BICALUTAMIDE [Suspect]
     Active Substance: BICALUTAMIDE
     Indication: Product used for unknown indication
     Dosage: 50 MG QD
     Route: 065
  2. ZOLADEX [Suspect]
     Active Substance: GOSERELIN ACETATE
     Route: 065
  3. APALUTAMIDE [Suspect]
     Active Substance: APALUTAMIDE
     Dosage: 240 MG QD
     Route: 048

REACTIONS (8)
  - Blood pressure systolic increased [Unknown]
  - Insomnia [Unknown]
  - Mental disorder [Unknown]
  - Asthenia [Unknown]
  - Dizziness [Unknown]
  - Hot flush [Unknown]
  - Nausea [Unknown]
  - Depression [Unknown]
